FAERS Safety Report 8212435-X (Version None)
Quarter: 2012Q1

REPORT INFORMATION
  Report Type: 
  Country: None (occurrence: None)
  Receive Date: 20120315
  Receipt Date: 20120309
  Transmission Date: 20120608
  Serious: Yes (Other)
  Sender: FDA-Public Use
  Company Number: US-ALEXION-A201200312

PATIENT
  Sex: Female

DRUGS (11)
  1. AZITHROMYCIN [Concomitant]
     Dosage: UNK
  2. BENADRYL [Concomitant]
     Dosage: UNK
  3. WARFARIN SODIUM [Concomitant]
     Dosage: UNK
  4. ACETAMINOPHEN [Concomitant]
     Dosage: UNK
  5. DEXAMETHASONE [Concomitant]
     Dosage: UNK
  6. FOLIC ACID [Concomitant]
     Dosage: UNK
  7. LORCET-HD [Concomitant]
     Dosage: UNK
  8. NYSTATIN [Concomitant]
     Dosage: UNK
  9. SOLIRIS [Suspect]
     Indication: PAROXYSMAL NOCTURNAL HAEMOGLOBINURIA
     Dosage: 900 MG, Q2W
     Route: 042
  10. ALPRAZOLAM [Concomitant]
     Dosage: UNK
  11. DILAUDID [Concomitant]
     Dosage: UNK

REACTIONS (1)
  - THROMBOSIS [None]
